FAERS Safety Report 9107100 (Version 2)
Quarter: 2013Q1

REPORT INFORMATION
  Report Type: Spontaneous
  Country: DE (occurrence: DE)
  Receive Date: 20130221
  Receipt Date: 20130315
  Transmission Date: 20140127
  Serious: Yes (Life-Threatening, Hospitalization)
  Sender: FDA-Public Use
  Company Number: DE-AMGEN-DEUSP2013011571

PATIENT
  Age: 70 Year
  Sex: Male
  Weight: 109 kg

DRUGS (4)
  1. ENBREL [Suspect]
     Indication: PSORIATIC ARTHROPATHY
     Dosage: 50 MG, WEEKLY
     Route: 058
     Dates: start: 201102, end: 201212
  2. DIOVANE [Concomitant]
     Dosage: 160 MG, 1X/DAY
  3. AMLODIPINE [Concomitant]
     Dosage: 5 MG, 1X/DAY
  4. TORASEMIDE [Concomitant]
     Dosage: 10 MG, 3X/DAY

REACTIONS (15)
  - Obesity [Not Recovered/Not Resolved]
  - Cholelithiasis [Not Recovered/Not Resolved]
  - Peripheral ischaemia [Not Recovered/Not Resolved]
  - Peripheral embolism [Not Recovered/Not Resolved]
  - Embolism [Not Recovered/Not Resolved]
  - Embolism arterial [Not Recovered/Not Resolved]
  - Renal artery occlusion [Not Recovered/Not Resolved]
  - Haemorrhagic anaemia [Not Recovered/Not Resolved]
  - Shock [Not Recovered/Not Resolved]
  - Supraventricular tachycardia [Not Recovered/Not Resolved]
  - Renal failure [Not Recovered/Not Resolved]
  - Pulmonary hypertension [Not Recovered/Not Resolved]
  - Hypertensive nephropathy [Not Recovered/Not Resolved]
  - Aortic valve stenosis [Not Recovered/Not Resolved]
  - Left ventricular failure [Not Recovered/Not Resolved]
